FAERS Safety Report 24825709 (Version 1)
Quarter: 2025Q1

REPORT INFORMATION
  Report Type: Spontaneous
  Country: US (occurrence: US)
  Receive Date: 20250109
  Receipt Date: 20250109
  Transmission Date: 20250409
  Serious: Yes (Hospitalization, Other)
  Sender: GLAND PHARMA LTD
  Company Number: US-GLANDPHARMA-US-2025GLNSPO00031

PATIENT
  Sex: Male

DRUGS (5)
  1. CLOFARABINE [Suspect]
     Active Substance: CLOFARABINE
     Indication: Chemotherapy
     Route: 042
  2. TOPOTECAN [Concomitant]
     Active Substance: TOPOTECAN HYDROCHLORIDE
     Indication: Product used for unknown indication
     Route: 042
  3. THIOTEPA [Concomitant]
     Active Substance: THIOTEPA
     Indication: Product used for unknown indication
     Route: 042
  4. DEXAMETHASONE [Concomitant]
     Active Substance: DEXAMETHASONE
     Indication: Product used for unknown indication
     Route: 065
  5. TACROLIMUS [Concomitant]
     Active Substance: TACROLIMUS
     Indication: Product used for unknown indication
     Route: 065

REACTIONS (16)
  - Graft versus host disease [Unknown]
  - Hepatic enzyme increased [Unknown]
  - Swelling [Unknown]
  - Tremor [Unknown]
  - Paraesthesia [Unknown]
  - Oliguria [Unknown]
  - Swelling face [Unknown]
  - Peripheral swelling [Unknown]
  - Capillary leak syndrome [Unknown]
  - Pyrexia [Unknown]
  - Erythema [Recovering/Resolving]
  - Hypotension [Unknown]
  - Heart rate increased [Unknown]
  - Rash [Unknown]
  - Nausea [Unknown]
  - Vomiting [Unknown]
